FAERS Safety Report 10157743 (Version 2)
Quarter: 2014Q2

REPORT INFORMATION
  Report Type: Report from Study
  Country: BE (occurrence: BE)
  Receive Date: 20140507
  Receipt Date: 20140507
  Transmission Date: 20141212
  Serious: Yes (Other)
  Sender: FDA-Public Use
  Company Number: PHHY2014BE010766

PATIENT
  Age: 60 Year
  Sex: Female

DRUGS (3)
  1. SOM230 [Suspect]
     Indication: CUSHING^S SYNDROME
     Dosage: 0.6 MG/ML, QD
     Route: 058
     Dates: start: 20131209, end: 20140121
  2. SOM230 [Suspect]
     Indication: OFF LABEL USE
  3. TEMOZOLOMIDE [Concomitant]

REACTIONS (1)
  - Hyperglycaemia [Recovering/Resolving]
